FAERS Safety Report 4885967-X (Version None)
Quarter: 2006Q1

REPORT INFORMATION
  Report Type: 
  Country: None (occurrence: None)
  Receive Date: 20060118
  Receipt Date: 20060118
  Transmission Date: 20060701
  Serious: Yes (Life-Threatening, Hospitalization)
  Sender: FDA-Public Use
  Company Number: None

PATIENT
  Age: 12 Year
  Sex: Female

DRUGS (1)
  1. CYCLOPHOSPHAMIDE [Suspect]
     Indication: CYSTITIS HAEMORRHAGIC
     Dosage: 585 MG PR
     Route: 051
     Dates: start: 20050510, end: 20050513

REACTIONS (2)
  - CYSTITIS HAEMORRHAGIC [None]
  - THERAPY NON-RESPONDER [None]
